FAERS Safety Report 8316010-8 (Version None)
Quarter: 2012Q2

REPORT INFORMATION
  Report Type: 
  Country: None (occurrence: None)
  Receive Date: 20120427
  Receipt Date: 20120416
  Transmission Date: 20120825
  Serious: Yes (Death, Hospitalization)
  Sender: FDA-Public Use
  Company Number: DE-AMGEN-DEUCT2012022647

PATIENT
  Age: 66 Year
  Sex: Female

DRUGS (14)
  1. TORSEMIDE [Concomitant]
     Dosage: UNK
  2. ETANERCEPT [Suspect]
     Indication: RHEUMATOID ARTHRITIS
     Dosage: UNK
     Dates: start: 20090201, end: 20090801
  3. BROMAZANIL [Concomitant]
     Dosage: UNK
  4. METHOTREXATE SODIUM [Concomitant]
     Indication: RHEUMATOID ARTHRITIS
     Dosage: UNK
  5. RAMIPRIL [Concomitant]
     Dosage: 2.5 MG, UNK
  6. ETANERCEPT [Suspect]
     Dosage: UNK
     Dates: start: 20100201, end: 20100501
  7. ETANERCEPT [Suspect]
     Dosage: UNK
     Dates: start: 20100901, end: 20110501
  8. MCP                                /00041901/ [Concomitant]
     Dosage: UNK
  9. ETANERCEPT [Suspect]
     Dosage: UNK
     Dates: start: 20110701, end: 20110801
  10. AMITRIPTYLINE HCL [Concomitant]
     Dosage: 25 MG, UNK
  11. LEVOTHYROXINE SODIUM [Concomitant]
     Dosage: 50 MG, UNK
  12. PREDNISONE [Concomitant]
     Dosage: 7.5 MG, UNK
  13. MORPHANTON [Concomitant]
     Dosage: UNK
  14. SPIRIVA [Concomitant]
     Dosage: 18 UG, UNK

REACTIONS (4)
  - RENAL FAILURE ACUTE [None]
  - INFECTIVE EXACERBATION OF CHRONIC OBSTRUCTIVE AIRWAYS DISEASE [None]
  - PULMONARY SEPSIS [None]
  - ILEUS [None]
